FAERS Safety Report 5822747-2 (Version None)
Quarter: 2008Q3

REPORT INFORMATION
  Report Type: 
  Country: None (occurrence: None)
  Receive Date: 20080725
  Receipt Date: 20070918
  Transmission Date: 20090109
  Serious: No
  Sender: FDA-Public Use
  Company Number: US-AMGEN-KDL243894

PATIENT
  Sex: Male
  Weight: 80 kg

DRUGS (2)
  1. EPOGEN [Suspect]
     Indication: RENAL FAILURE CHRONIC
  2. IMMUNOSUPPRESSANTS [Concomitant]
     Dates: start: 20040101

REACTIONS (2)
  - SERUM FERRITIN INCREASED [None]
  - THERAPEUTIC RESPONSE DECREASED [None]
